FAERS Safety Report 8114859-8 (Version None)
Quarter: 2012Q1

REPORT INFORMATION
  Report Type: 
  Country: None (occurrence: None)
  Receive Date: 20120206
  Receipt Date: 20120130
  Transmission Date: 20120608
  Serious: Yes (Hospitalization)
  Sender: FDA-Public Use
  Company Number: US-JNJFOC-20120200001

PATIENT
  Sex: Female
  Weight: 86.18 kg

DRUGS (5)
  1. FENTANYL-100 [Suspect]
     Route: 062
     Dates: start: 20090101
  2. AN UNKNOWN MEDICATION [Suspect]
     Indication: CHEMOTHERAPY
     Route: 065
     Dates: start: 20120101, end: 20120101
  3. FENTANYL-100 [Suspect]
     Indication: PAIN
     Route: 062
  4. FENTANYL-100 [Suspect]
     Dosage: NDC# 0781-7244-55
     Route: 062
     Dates: start: 20110101
  5. FENTANYL-100 [Suspect]
     Route: 062

REACTIONS (9)
  - DERMATITIS CONTACT [None]
  - PRODUCT ADHESION ISSUE [None]
  - WRONG TECHNIQUE IN DRUG USAGE PROCESS [None]
  - APPLICATION SITE VESICLES [None]
  - CHEMOTHERAPY [None]
  - PAIN [None]
  - APPLICATION SITE BURN [None]
  - INCORRECT DOSE ADMINISTERED [None]
  - PRODUCT QUALITY ISSUE [None]
